FAERS Safety Report 12630296 (Version 1)
Quarter: 2016Q3

REPORT INFORMATION
  Report Type: Spontaneous
  Country: PH (occurrence: PH)
  Receive Date: 20160808
  Receipt Date: 20160808
  Transmission Date: 20161109
  Serious: Yes (Hospitalization, Other)
  Sender: FDA-Public Use
  Company Number: PH-BAYER-2016-151949

PATIENT
  Age: 56 Year
  Sex: Male

DRUGS (1)
  1. ULTRAVIST [Suspect]
     Active Substance: IOPROMIDE
     Indication: ABDOMEN SCAN
     Dosage: 1 DF, ONCE
     Route: 042
     Dates: start: 20160804, end: 20160804

REACTIONS (13)
  - Acute coronary syndrome [None]
  - Lip swelling [None]
  - Anaphylactic shock [None]
  - Depressed level of consciousness [None]
  - Acute myocardial infarction [None]
  - Wheezing [None]
  - Seizure [None]
  - Haematemesis [None]
  - Chills [None]
  - Urinary incontinence [None]
  - Pulse absent [None]
  - Fall [None]
  - Eyelid oedema [None]

NARRATIVE: CASE EVENT DATE: 20160804
